FAERS Safety Report 10041686 (Version 1)
Quarter: 2014Q1

REPORT INFORMATION
  Report Type: Spontaneous
  Country: US (occurrence: US)
  Receive Date: 20140327
  Receipt Date: 20140327
  Transmission Date: 20141002
  Serious: No
  Sender: FDA-Public Use
  Company Number: US-PFIZER INC-2014083565

PATIENT
  Age: 3 Year
  Sex: Male

DRUGS (1)
  1. RAPAMUNE [Suspect]
     Indication: IMMUNOSUPPRESSANT DRUG THERAPY
     Dosage: 0.5 ML, 1X/DAY
     Route: 048
     Dates: start: 20140320

REACTIONS (2)
  - Drug administration error [Unknown]
  - Off label use [Unknown]
